FAERS Safety Report 7961473-0 (Version None)
Quarter: 2011Q4

REPORT INFORMATION
  Report Type: 
  Country: None (occurrence: None)
  Receive Date: 20111202
  Receipt Date: 20111202
  Transmission Date: 20120403
  Serious: Yes (Hospitalization)
  Sender: FDA-Public Use
  Company Number: None

PATIENT
  Sex: Female
  Weight: 26.7 kg

DRUGS (6)
  1. CEFPODOXIME PROXETIL [Concomitant]
  2. IRINOTECAN HCL [Suspect]
     Indication: NEUROBLASTOMA
     Dosage: 47 MG 5X EVERY 21 DAYS IV
     Route: 042
     Dates: start: 20110718
  3. VELCADE [Suspect]
     Indication: NEUROBLASTOMA
     Dosage: 1.2 MG 4X EVERY 21 DAYS IV
     Route: 042
     Dates: start: 20110718
  4. BACTRIM [Concomitant]
  5. ZOFRAN [Concomitant]
  6. MIRALAX [Concomitant]

REACTIONS (4)
  - HAEMOGLOBIN DECREASED [None]
  - PLATELET COUNT DECREASED [None]
  - WHITE BLOOD CELL COUNT DECREASED [None]
  - BACTERAEMIA [None]
